FAERS Safety Report 8191352-8 (Version None)
Quarter: 2012Q1

REPORT INFORMATION
  Report Type: 
  Country: None (occurrence: None)
  Receive Date: 20120307
  Receipt Date: 20120223
  Transmission Date: 20120608
  Serious: Yes (Other)
  Sender: FDA-Public Use
  Company Number: NL-MEDIMMUNE-MEDI-0015007

PATIENT
  Sex: Female
  Weight: 8.2 kg

DRUGS (3)
  1. LEVETIRACETAM [Concomitant]
  2. SYNAGIS [Suspect]
     Indication: HEART DISEASE CONGENITAL
     Route: 030
     Dates: start: 20110901, end: 20120117
  3. SYNAGIS [Suspect]
     Route: 030
     Dates: start: 20120214

REACTIONS (4)
  - PROCEDURAL HAEMORRHAGE [None]
  - POST PROCEDURAL COMPLICATION [None]
  - CEREBRAL ISCHAEMIA [None]
  - EPILEPSY [None]
